FAERS Safety Report 24112802 (Version 1)
Quarter: 2024Q3

REPORT INFORMATION
  Report Type: Spontaneous
  Country: CA (occurrence: CA)
  Receive Date: 20240719
  Receipt Date: 20240719
  Transmission Date: 20241016
  Serious: Yes (Death)
  Sender: PFIZER
  Company Number: CA-PFIZER INC-PV202300065615

PATIENT
  Age: 57 Year
  Sex: Male
  Weight: 74.5 kg

DRUGS (5)
  1. BRAFTOVI [Suspect]
     Active Substance: ENCORAFENIB
     Indication: Malignant melanoma
     Dosage: UNK
     Dates: start: 20230406
  2. BRAFTOVI [Suspect]
     Active Substance: ENCORAFENIB
     Dosage: 450 MG, 1X/DAY, , (CAPSULE 75MG -DOSE 450MG TOTAL PO ONCE DAILY) WITH OR WITHOUT FOOD
     Route: 048
  3. LOPERAMIDE HYDROCHLORIDE [Concomitant]
     Active Substance: LOPERAMIDE HYDROCHLORIDE
     Dosage: 2 MG
  4. MEKTOVI [Concomitant]
     Active Substance: BINIMETINIB
     Indication: Malignant melanoma
     Dosage: 45 MG, 2X/DAY (TABLET 15MG- DOSE 45MG TOTAL PO BID)
     Route: 048
  5. METOCLOPRAMIDE HYDROCHLORIDE [Concomitant]
     Active Substance: METOCLOPRAMIDE HYDROCHLORIDE
     Dosage: 10 MG

REACTIONS (2)
  - Death [Fatal]
  - Abdominal pain upper [Unknown]
